FAERS Safety Report 12832488 (Version 1)
Quarter: 2016Q4

REPORT INFORMATION
  Report Type: Report from Study
  Country: US (occurrence: US)
  Receive Date: 20161010
  Receipt Date: 20161010
  Transmission Date: 20170207
  Serious: Yes (Other)
  Sender: FDA-Public Use
  Company Number: US-JAZZ-2016-US-013136

PATIENT

DRUGS (1)
  1. XYREM [Suspect]
     Active Substance: SODIUM OXYBATE
     Indication: NARCOLEPSY
     Dosage: UNKNOWN DOSE
     Route: 048

REACTIONS (6)
  - Obesity [Unknown]
  - Sleep apnoea syndrome [Unknown]
  - Migraine [Unknown]
  - Headache [Unknown]
  - Asthma [Unknown]
  - Endometriosis [Unknown]
